FAERS Safety Report 22105496 (Version 1)
Quarter: 2023Q1

REPORT INFORMATION
  Report Type: Report from Study
  Country: CA (occurrence: CA)
  Receive Date: 20230317
  Receipt Date: 20230317
  Transmission Date: 20230417
  Serious: Yes (Other)
  Sender: FDA-Public Use
  Company Number: CA-002147023-NVSC2020CA068707

PATIENT
  Age: 55 Year
  Sex: Female

DRUGS (1)
  1. AIMOVIG [Suspect]
     Active Substance: ERENUMAB-AOOE
     Indication: Migraine
     Dosage: UNK
     Route: 065
     Dates: start: 20191212

REACTIONS (7)
  - Loss of consciousness [Unknown]
  - Stress [Unknown]
  - Anxiety [Unknown]
  - Illness [Unknown]
  - Pain [Unknown]
  - Drug ineffective [Unknown]
  - Headache [Unknown]
